FAERS Safety Report 9085774 (Version 1)
Quarter: 2013Q1

REPORT INFORMATION
  Report Type: Report from Study
  Country: US (occurrence: US)
  Receive Date: 20130131
  Receipt Date: 20130131
  Transmission Date: 20140127
  Serious: No
  Sender: FDA-Public Use
  Company Number: US-ABBOTT-12P-163-0992476-00

PATIENT
  Sex: Female
  Weight: 60.38 kg

DRUGS (5)
  1. HUMIRA [Suspect]
     Indication: PSORIASIS
     Route: 058
     Dates: end: 20121008
  2. HUMIRA [Suspect]
     Route: 058
     Dates: start: 20121008
  3. PROCARDIA XL [Concomitant]
     Indication: HYPERTENSION
  4. METHOTREXATE [Concomitant]
     Indication: PSORIASIS
     Dosage: 7 TABLETS WEEKLY
     Route: 048
     Dates: end: 20121008
  5. METHOTREXATE [Concomitant]
     Indication: PSORIATIC ARTHROPATHY
     Dosage: 8 TABLETS PER WEEK
     Route: 048
     Dates: start: 20121008

REACTIONS (1)
  - Psoriasis [Not Recovered/Not Resolved]
